FAERS Safety Report 16068164 (Version 2)
Quarter: 2019Q2

REPORT INFORMATION
  Report Type: Spontaneous
  Country: US (occurrence: US)
  Receive Date: 20190313
  Receipt Date: 20190416
  Transmission Date: 20190711
  Serious: No
  Sender: FDA-Public Use
  Company Number: PHEH2019US009806

PATIENT
  Sex: Female

DRUGS (2)
  1. AMPICILLIN SODIUM/SULBACTAM SODIUM INJ [Suspect]
     Active Substance: AMPICILLIN SODIUM\SULBACTAM SODIUM
     Dosage: UNK
     Route: 065
  2. AMPICILLIN SODIUM/SULBACTAM SODIUM INJ [Suspect]
     Active Substance: AMPICILLIN SODIUM\SULBACTAM SODIUM
     Indication: PRODUCT USED FOR UNKNOWN INDICATION
     Dosage: UNK
     Route: 065

REACTIONS (2)
  - Product leakage [Unknown]
  - Accidental exposure to product [Unknown]
